FAERS Safety Report 7264855-8 (Version None)
Quarter: 2011Q1

REPORT INFORMATION
  Report Type: 
  Country: None (occurrence: None)
  Receive Date: 20110131
  Receipt Date: 20100927
  Transmission Date: 20110831
  Serious: No
  Sender: FDA-Public Use
  Company Number: US-BAYER-201035611NA

PATIENT
  Sex: Female

DRUGS (3)
  1. YASMIN [Suspect]
     Indication: ACNE
  2. OCELLA [Suspect]
     Indication: ACNE
  3. YAZ [Suspect]
     Indication: ACNE

REACTIONS (1)
  - INJURY [None]
